FAERS Safety Report 13473980 (Version 2)
Quarter: 2017Q2

REPORT INFORMATION
  Report Type: Spontaneous
  Country: GB (occurrence: GB)
  Receive Date: 20170424
  Receipt Date: 20170605
  Transmission Date: 20170830
  Serious: Yes (Other)
  Sender: FDA-Public Use
  Company Number: GB-MYLANLABS-2017M1024056

PATIENT

DRUGS (14)
  1. AMIODARONE [Suspect]
     Active Substance: AMIODARONE
     Route: 065
  2. FULTIUM D3 [Concomitant]
     Active Substance: CHOLECALCIFEROL
     Dosage: DOSE:800 UNIT(S)
  3. ACETAMINOPHEN. [Suspect]
     Active Substance: ACETAMINOPHEN
     Route: 065
  4. CITALOPRAM [Suspect]
     Active Substance: CITALOPRAM HYDROBROMIDE
     Route: 065
  5. LANSOPRAZOLE. [Suspect]
     Active Substance: LANSOPRAZOLE
     Route: 065
  6. CLOPIDOGREL BISULFATE. [Suspect]
     Active Substance: CLOPIDOGREL BISULFATE
     Route: 065
  7. LYRICA [Concomitant]
     Active Substance: PREGABALIN
  8. FABRAZYME [Suspect]
     Active Substance: AGALSIDASE BETA
     Dosage: 50MG (GIVEN AS 35MG + 15MG), FORTNIGHTLY^35MG - C578H24, 30/11/201 8;^15MG - E6002H01, 31/01/2019
     Route: 041
  9. SALBUTAMOL [Concomitant]
     Active Substance: ALBUTEROL
  10. PERINDOPRIL [Concomitant]
     Active Substance: PERINDOPRIL
  11. ASPIRIN                            /00002701/ [Concomitant]
     Active Substance: ASPIRIN
  12. NEBIVOLOL. [Concomitant]
     Active Substance: NEBIVOLOL
  13. CODEINE PHOSPHATE HYDRATE [Suspect]
     Active Substance: CODEINE PHOSPHATE
     Dosage: DOSE: 30/500MGS 4X DAILY
     Route: 065
  14. FABRAZYME [Suspect]
     Active Substance: AGALSIDASE BETA
     Dosage: 50MG (GIVEN AS 35MG + 15MG), FORTNIGHTLY^35MG - C578H24, 30/11/201 8;^15MG - E6002H01, 31/01/2019
     Route: 041

REACTIONS (3)
  - Lower respiratory tract infection [Unknown]
  - Wheezing [Unknown]
  - Cough [Recovered/Resolved]
